FAERS Safety Report 5495959-8 (Version None)
Quarter: 2007Q4

REPORT INFORMATION
  Report Type: 
  Country: None (occurrence: None)
  Receive Date: 20071025
  Receipt Date: 20070423
  Transmission Date: 20080405
  Serious: No
  Sender: FDA-Public Use
  Company Number: A0633757A

PATIENT
  Age: 61 Year
  Sex: Female

DRUGS (15)
  1. ADVAIR DISKUS 100/50 [Suspect]
     Indication: CHRONIC OBSTRUCTIVE PULMONARY DISEASE
     Dosage: 1PUFF TWICE PER DAY
     Route: 055
     Dates: start: 20061212
  2. ADVAIR DISKUS 100/50 [Suspect]
     Dosage: 1PUFF TWICE PER DAY
     Route: 055
  3. SPIRIVA [Concomitant]
  4. UNKNOWN MEDICATION [Concomitant]
  5. HYDAL [Concomitant]
  6. RANITIDINE HCL [Concomitant]
  7. SEROQUEL [Concomitant]
  8. MIRTAZAPINE [Concomitant]
  9. COMBIVENT [Concomitant]
  10. OXYGEN [Concomitant]
  11. ALBUTEROL SULFATE [Concomitant]
  12. IPRATROPIUM BROMIDE [Concomitant]
  13. CLONAZEPAM [Concomitant]
  14. HYDROCHLOROTHIAZIDE [Concomitant]
  15. KEFLEX [Concomitant]

REACTIONS (3)
  - DRUG INEFFECTIVE [None]
  - DYSPNOEA [None]
  - PHARMACEUTICAL PRODUCT COMPLAINT [None]
